FAERS Safety Report 5719408-7 (Version None)
Quarter: 2008Q2

REPORT INFORMATION
  Report Type: 
  Country: None (occurrence: None)
  Receive Date: 20080428
  Receipt Date: 20080417
  Transmission Date: 20081010
  Serious: Yes (Hospitalization, Other)
  Sender: FDA-Public Use
  Company Number: JP-NOVOPROD-274563

PATIENT
  Age: 68 Year
  Sex: Female
  Weight: 40 kg

DRUGS (6)
  1. NOVORAPID CHU FLEXPEN [Suspect]
     Indication: TYPE 2 DIABETES MELLITUS
     Dosage: 8-4-4IU
     Route: 058
     Dates: start: 20071025
  2. LANTUS [Concomitant]
     Dosage: 8 IU, QD
     Route: 058
     Dates: start: 20071025, end: 20080417
  3. BASEN [Concomitant]
     Indication: TYPE 2 DIABETES MELLITUS
     Dosage: .9 MG, QD
     Route: 048
     Dates: start: 20071128, end: 20080408
  4. MEVALOTIN [Concomitant]
     Dosage: 1 TAB, QD
     Route: 048
     Dates: start: 20080118, end: 20080408
  5. BLADDERON [Concomitant]
     Dosage: 3 TAB, QD
     Route: 048
     Dates: start: 20080206, end: 20080331
  6. BUP-4 [Concomitant]
     Dosage: 1 TAB, QD
     Route: 048
     Dates: start: 20080206, end: 20080331

REACTIONS (4)
  - ALANINE AMINOTRANSFERASE INCREASED [None]
  - ASPARTATE AMINOTRANSFERASE INCREASED [None]
  - CEREBRAL HAEMORRHAGE TRAUMATIC [None]
  - HEPATIC FUNCTION ABNORMAL [None]
